FAERS Safety Report 14247612 (Version 1)
Quarter: 2017Q4

REPORT INFORMATION
  Report Type: Spontaneous
  Country: US (occurrence: None)
  Receive Date: 20171203
  Receipt Date: 20171203
  Transmission Date: 20180321
  Serious: No
  Sender: FDA-Public Use
  Company Number: None

PATIENT
  Age: 48 Year
  Sex: Female

DRUGS (17)
  1. RANITIDINE. [Concomitant]
     Active Substance: RANITIDINE
  2. SOLIFENACIN [Concomitant]
     Active Substance: SOLIFENACIN
  3. AMPYRA [Suspect]
     Active Substance: DALFAMPRIDINE
     Indication: MULTIPLE SCLEROSIS
     Route: 048
     Dates: start: 201203
  4. DARIFENACIN. [Concomitant]
     Active Substance: DARIFENACIN
  5. KETOCONAZOLE SHAMPOO [Concomitant]
     Active Substance: KETOCONAZOLE
  6. TRIAMCINOLONE TOPICAL OINTMENT [Concomitant]
  7. AMLACTIN TOPICAL LOTION [Concomitant]
  8. REBIF [Concomitant]
     Active Substance: INTERFERON BETA-1A
  9. BACLOFEN. [Concomitant]
     Active Substance: BACLOFEN
  10. TACROLIMUS TOPICAL OINTMENT [Concomitant]
  11. PRAVASTATIN. [Concomitant]
     Active Substance: PRAVASTATIN
  12. FLONASE [Concomitant]
     Active Substance: FLUTICASONE PROPIONATE
  13. IBUPROFEN. [Concomitant]
     Active Substance: IBUPROFEN
  14. FUROSEMIDE. [Concomitant]
     Active Substance: FUROSEMIDE
  15. GALANTAMINE. [Concomitant]
     Active Substance: GALANTAMINE
  16. GABAPENTIN. [Concomitant]
     Active Substance: GABAPENTIN
  17. VITAMIN D2 [Concomitant]
     Active Substance: ERGOCALCIFEROL

REACTIONS (2)
  - Urine analysis abnormal [None]
  - Urinary tract infection [None]

NARRATIVE: CASE EVENT DATE: 20171103
